FAERS Safety Report 9310291 (Version 4)
Quarter: 2013Q3

REPORT INFORMATION
  Report Type: Spontaneous
  Country: GB (occurrence: GB)
  Receive Date: 20130527
  Receipt Date: 20130722
  Transmission Date: 20140515
  Serious: Yes (Hospitalization, Other)
  Sender: FDA-Public Use
  Company Number: PHFR2013GB003027

PATIENT
  Age: 53 Year
  Sex: Male
  Weight: 94.5 kg

DRUGS (3)
  1. CLOZARIL [Suspect]
     Indication: SCHIZOPHRENIA
     Dosage: 300 MG (100 MG MORNING 200 MG NOCTE)
     Route: 048
     Dates: start: 20130509
  2. SULPRIDE [Concomitant]
     Indication: BIPOLAR DISORDER
     Dosage: 800 MG
     Route: 048
     Dates: start: 20130501
  3. LITHIUM CARBONATE [Concomitant]
     Indication: BIPOLAR DISORDER
     Dosage: 800 MG
     Route: 048
     Dates: start: 20130501

REACTIONS (13)
  - Viral infection [Recovered/Resolved]
  - Malaise [Recovered/Resolved]
  - Inflammatory marker increased [Unknown]
  - Lethargy [Recovered/Resolved]
  - Pain [Unknown]
  - Fatigue [Unknown]
  - Pyrexia [Recovered/Resolved]
  - White blood cell count increased [Recovered/Resolved]
  - Neutrophil count increased [Recovered/Resolved]
  - Somnolence [Recovered/Resolved]
  - Eosinophil count increased [Recovered/Resolved]
  - Psychotic disorder [Recovered/Resolved]
  - Alanine aminotransferase increased [Recovered/Resolved]
